FAERS Safety Report 6231556-4 (Version None)
Quarter: 2009Q2

REPORT INFORMATION
  Report Type: 
  Country: None (occurrence: None)
  Receive Date: 20090611
  Receipt Date: 20090528
  Transmission Date: 20091009
  Serious: Yes (Hospitalization)
  Sender: FDA-Public Use
  Company Number: 1000006646

PATIENT
  Age: 90 Year
  Sex: Male

DRUGS (4)
  1. MEMANTINE HCL [Suspect]
     Indication: DEMENTIA
     Dosage: 20 MG (20 MG, 1 IN 1 D), ORAL
     Route: 048
     Dates: start: 20090122, end: 20090203
  2. FUROSEMIDE [Concomitant]
  3. RAMIPRIL [Concomitant]
  4. ATARAX [Concomitant]

REACTIONS (2)
  - BRONCHITIS [None]
  - PHLEBITIS [None]
